FAERS Safety Report 13376597 (Version 1)
Quarter: 2017Q1

REPORT INFORMATION
  Report Type: Spontaneous
  Country: US (occurrence: US)
  Receive Date: 20170327
  Receipt Date: 20170327
  Transmission Date: 20170429
  Serious: Yes (Life-Threatening, Hospitalization)
  Sender: FDA-Public Use
  Company Number: None

PATIENT
  Age: 49 Year
  Sex: Female
  Weight: 80.6 kg

DRUGS (1)
  1. REMICADE [Suspect]
     Active Substance: INFLIXIMAB
     Indication: COLITIS ULCERATIVE
     Dosage: ?          OTHER FREQUENCY:ONCE;?
     Route: 041
     Dates: start: 20160927, end: 20160927

REACTIONS (6)
  - Pneumonitis [None]
  - Cough [None]
  - Respiratory failure [None]
  - Chest discomfort [None]
  - Tachycardia [None]
  - Dyspnoea [None]

NARRATIVE: CASE EVENT DATE: 20161031
